FAERS Safety Report 9033050 (Version 1)
Quarter: 2013Q1

REPORT INFORMATION
  Report Type: Spontaneous
  Country: US (occurrence: US)
  Receive Date: 20130128
  Receipt Date: 20130128
  Transmission Date: 20140127
  Serious: Yes (Other)
  Sender: FDA-Public Use
  Company Number: US-JNJFOC-20130111025

PATIENT
  Sex: Male
  Weight: 134.27 kg

DRUGS (1)
  1. BENADRYL UNSPECIFIED [Suspect]
     Indication: MULTIPLE ALLERGIES
     Route: 048

REACTIONS (3)
  - Loss of consciousness [Recovered/Resolved]
  - Performance status decreased [Recovered/Resolved]
  - Somnolence [Recovered/Resolved]
